FAERS Safety Report 6254747-5 (Version None)
Quarter: 2009Q3

REPORT INFORMATION
  Report Type: 
  Country: None (occurrence: None)
  Receive Date: 20090702
  Receipt Date: 20090629
  Transmission Date: 20100115
  Serious: Yes (Hospitalization)
  Sender: FDA-Public Use
  Company Number: NL-ROCHE-640961

PATIENT
  Age: 31 Year
  Sex: Female

DRUGS (1)
  1. MYCOPHENOLATE MOFETIL [Suspect]
     Indication: DRUG USE FOR UNKNOWN INDICATION
     Route: 065

REACTIONS (10)
  - ANAEMIA [None]
  - ARTHRITIS [None]
  - BUTTERFLY RASH [None]
  - HEADACHE [None]
  - LEUKOPENIA [None]
  - NEPHROTIC SYNDROME [None]
  - OEDEMA [None]
  - SKIN LESION [None]
  - SYSTEMIC LUPUS ERYTHEMATOSUS [None]
  - THROMBOCYTOPENIA [None]
